FAERS Safety Report 6494091-4 (Version None)
Quarter: 2009Q4

REPORT INFORMATION
  Report Type: 
  Country: None (occurrence: None)
  Receive Date: 20091214
  Receipt Date: 20090115
  Transmission Date: 20100525
  Serious: No
  Sender: FDA-Public Use
  Company Number: US-BRISTOL-MYERS SQUIBB COMPANY-14456545

PATIENT
  Age: 42 Year
  Sex: Male
  Weight: 91 kg

DRUGS (5)
  1. ABILIFY [Suspect]
     Indication: POST-TRAUMATIC STRESS DISORDER
     Dosage: STARTED AS 5MG AND INCREASED TO 10MG.
     Route: 048
     Dates: start: 20081127
  2. ABILIFY [Suspect]
     Indication: DEPRESSION
     Dosage: STARTED AS 5MG AND INCREASED TO 10MG.
     Route: 048
     Dates: start: 20081127
  3. ABILIFY [Suspect]
     Indication: IRRITABILITY
     Dosage: STARTED AS 5MG AND INCREASED TO 10MG.
     Route: 048
     Dates: start: 20081127
  4. ABILIFY [Suspect]
     Indication: SUSPICIOUSNESS
     Dosage: STARTED AS 5MG AND INCREASED TO 10MG.
     Route: 048
     Dates: start: 20081127
  5. PAXIL [Concomitant]

REACTIONS (3)
  - MUSCLE RIGIDITY [None]
  - RESTLESS LEGS SYNDROME [None]
  - RESTLESSNESS [None]
